FAERS Safety Report 12586592 (Version 4)
Quarter: 2018Q4

REPORT INFORMATION
  Report Type: Spontaneous
  Country: US (occurrence: US)
  Receive Date: 20160725
  Receipt Date: 20181023
  Transmission Date: 20190204
  Serious: Yes (Other)
  Sender: FDA-Public Use
  Company Number: US-PFIZER INC-2016327058

PATIENT
  Age: 98 Year
  Sex: Female

DRUGS (1)
  1. XELJANZ XR [Suspect]
     Active Substance: TOFACITINIB CITRATE
     Dosage: 11 MG, UNK
     Route: 048

REACTIONS (4)
  - Hip fracture [Unknown]
  - Fall [Unknown]
  - Urinary tract infection [Unknown]
  - Dysphagia [Unknown]

NARRATIVE: CASE EVENT DATE: 20180514
